FAERS Safety Report 18527547 (Version 1)
Quarter: 2020Q4

REPORT INFORMATION
  Report Type: Spontaneous
  Country: CZ (occurrence: CZ)
  Receive Date: 20201120
  Receipt Date: 20201120
  Transmission Date: 20210114
  Serious: Yes (Hospitalization, Other)
  Sender: FDA-Public Use
  Company Number: NVSC2020CZ308863

PATIENT
  Age: 40 Year
  Sex: Male

DRUGS (5)
  1. OLANZAPINE. [Suspect]
     Active Substance: OLANZAPINE
     Indication: SCHIZOPHRENIA
     Dosage: 10 MILLIGRAM DAILY
     Route: 065
  2. RISPERIDONE. [Suspect]
     Active Substance: RISPERIDONE
     Indication: SCHIZOPHRENIA
     Dosage: FIRST ORALLY, LATER SWITCHED TO LONG-LASTING INJECTION FORM
     Route: 048
     Dates: start: 2004
  3. PERINDOPRIL [Suspect]
     Active Substance: PERINDOPRIL
     Indication: HYPERTENSION
     Dosage: 4 MILLIGRAM DAILY
     Route: 065
  4. QUETIAPINE. [Suspect]
     Active Substance: QUETIAPINE
     Indication: SCHIZOPHRENIA
     Dosage: 200 MG DAILY; 200 MG INCREASED TO 600 MG IN 2007, LATED RISCONTINUED
     Route: 065
  5. REPAGLINIDE. [Suspect]
     Active Substance: REPAGLINIDE
     Indication: TYPE 2 DIABETES MELLITUS
     Dosage: UNK
     Route: 048
     Dates: end: 2017

REACTIONS (6)
  - Gynaecomastia [Unknown]
  - Metabolic disorder [Recovering/Resolving]
  - Pancreatitis acute [Recovered/Resolved]
  - Drug ineffective [Unknown]
  - Hyperprolactinaemia [Unknown]
  - Schizophrenia [Recovering/Resolving]

NARRATIVE: CASE EVENT DATE: 2007
